FAERS Safety Report 6252549-7 (Version None)
Quarter: 2009Q2

REPORT INFORMATION
  Report Type: 
  Country: None (occurrence: None)
  Receive Date: 20090629
  Receipt Date: 20090629
  Transmission Date: 20091009
  Serious: Yes (Other)
  Sender: FDA-Public Use
  Company Number: None

PATIENT
  Age: 82 Year
  Sex: Male
  Weight: 83.9154 kg

DRUGS (2)
  1. AMBIEN CR [Suspect]
     Indication: INITIAL INSOMNIA
     Dosage: 1 TABLET / ONCE MOUTH
     Route: 048
     Dates: start: 20090529
  2. AMBIEN CR [Suspect]
     Indication: INITIAL INSOMNIA
     Dosage: 1 TABLET / ONCE MOUTH
     Route: 048
     Dates: start: 20090530

REACTIONS (4)
  - CRYING [None]
  - FALL [None]
  - PAIN [None]
  - PELVIC FRACTURE [None]
